FAERS Safety Report 15169006 (Version 1)
Quarter: 2018Q3

REPORT INFORMATION
  Report Type: Spontaneous
  Country: US (occurrence: US)
  Receive Date: 20180720
  Receipt Date: 20180720
  Transmission Date: 20181010
  Serious: No
  Sender: FDA-Public Use
  Company Number: US-TEVA-791038ACC

PATIENT
  Age: 67 Year
  Sex: Female

DRUGS (3)
  1. FOLIC ACID. [Concomitant]
     Active Substance: FOLIC ACID
     Indication: SUPPLEMENTATION THERAPY
     Dosage: 3 MILLIGRAM DAILY;
     Dates: start: 201510
  2. XELJANZ [Concomitant]
     Active Substance: TOFACITINIB CITRATE
     Dosage: EXTENDED RELEASE
  3. METHOTREXATE. [Suspect]
     Active Substance: METHOTREXATE
     Indication: RHEUMATOID ARTHRITIS
     Dosage: 8 TABLETS ONCE A WEEK
     Route: 048
     Dates: start: 201510, end: 2017

REACTIONS (5)
  - Diarrhoea [Recovering/Resolving]
  - Gastrointestinal sounds abnormal [Recovering/Resolving]
  - Sinusitis [Unknown]
  - Alopecia [Recovered/Resolved]
  - Flatulence [Recovering/Resolving]

NARRATIVE: CASE EVENT DATE: 2017
